FAERS Safety Report 7999772-9 (Version None)
Quarter: 2011Q4

REPORT INFORMATION
  Report Type: 
  Country: None (occurrence: None)
  Receive Date: 20111222
  Receipt Date: 20111213
  Transmission Date: 20120403
  Serious: Yes (Hospitalization)
  Sender: FDA-Public Use
  Company Number: US-AMGEN-USASP2011067039

PATIENT
  Age: 48 Year
  Sex: Male

DRUGS (2)
  1. ENBREL [Suspect]
     Indication: SCLERODERMA
     Dosage: 50 MG, QWK
     Dates: start: 20090101, end: 20110701
  2. ENBREL [Suspect]
     Indication: ARTHRITIS

REACTIONS (7)
  - GOUT [None]
  - NASOPHARYNGITIS [None]
  - RENAL DISORDER [None]
  - SCLERODERMA [None]
  - INFLUENZA [None]
  - JOINT SWELLING [None]
  - ARTHRITIS [None]
